FAERS Safety Report 5424712-6 (Version None)
Quarter: 2007Q3

REPORT INFORMATION
  Report Type: 
  Country: None (occurrence: None)
  Receive Date: 20070824
  Receipt Date: 20070815
  Transmission Date: 20080115
  Serious: Yes (Other)
  Sender: FDA-Public Use
  Company Number: CA-JNJFOC-20070803715

PATIENT
  Sex: Female

DRUGS (2)
  1. RISPERDAL CONSTA [Suspect]
     Indication: SCHIZOPHRENIA
     Route: 030
  2. LORAZEPAM [Concomitant]

REACTIONS (3)
  - BRONCHOSPASM [None]
  - FACE OEDEMA [None]
  - PHARYNGEAL OEDEMA [None]
